FAERS Safety Report 20096984 (Version 1)
Quarter: 2021Q4

REPORT INFORMATION
  Report Type: Spontaneous
  Country: US (occurrence: None)
  Receive Date: 20211120
  Receipt Date: 20211120
  Transmission Date: 20220303
  Serious: No
  Sender: FDA-Public Use
  Company Number: None

PATIENT
  Age: 69 Year
  Sex: Male
  Weight: 97.2 kg

DRUGS (1)
  1. HYDROCHLOROTHIAZIDE [Suspect]
     Active Substance: HYDROCHLOROTHIAZIDE
     Indication: Hypertension
     Dosage: OTHER QUANTITY : 1 TABLET(S);?FREQUENCY : DAILY;?
     Route: 048
     Dates: start: 20210913, end: 20210913

REACTIONS (9)
  - Muscle spasms [None]
  - Gait disturbance [None]
  - Hyperhidrosis [None]
  - Dizziness [None]
  - Syncope [None]
  - Nausea [None]
  - Head injury [None]
  - Asthenia [None]
  - Fall [None]

NARRATIVE: CASE EVENT DATE: 20210913
